FAERS Safety Report 7861209-8 (Version None)
Quarter: 2011Q4

REPORT INFORMATION
  Report Type: 
  Country: None (occurrence: None)
  Receive Date: 20111027
  Receipt Date: 20111014
  Transmission Date: 20120403
  Serious: Yes (Other)
  Sender: FDA-Public Use
  Company Number: BR-ELI_LILLY_AND_COMPANY-BR201110004919

PATIENT
  Age: 52 Year
  Sex: Female
  Weight: 88.8 kg

DRUGS (6)
  1. HUMULIN 70/30 [Suspect]
     Dosage: 30 IU, OTHER
     Route: 065
  2. METFORMIN HCL [Concomitant]
     Dosage: 500 MG, TID
     Route: 065
  3. ROSUVASTATIN [Concomitant]
     Dosage: 10 MG, QD
     Route: 065
  4. HUMULIN 70/30 [Suspect]
     Dosage: 24 IU, OTHER
     Route: 065
  5. OLMESARTAN MEDOXOMIL [Concomitant]
     Dosage: 20 MG, QD
     Route: 065
  6. HYDROCHLOROTHIAZIDE [Concomitant]
     Dosage: 25 MG, QD
     Route: 065

REACTIONS (14)
  - LEFT VENTRICULAR DYSFUNCTION [None]
  - RENAL CYST [None]
  - BLOOD CHOLESTEROL INCREASED [None]
  - LEFT VENTRICULAR HYPERTROPHY [None]
  - BUNDLE BRANCH BLOCK LEFT [None]
  - LOW DENSITY LIPOPROTEIN INCREASED [None]
  - BLOOD GLUCOSE INCREASED [None]
  - LEFT ATRIAL DILATATION [None]
  - BLOOD TRIGLYCERIDES INCREASED [None]
  - HEPATIC STEATOSIS [None]
  - HYPOVENTILATION [None]
  - UTERINE LEIOMYOMA [None]
  - OBESITY SURGERY [None]
  - GLYCOSYLATED HAEMOGLOBIN INCREASED [None]
